FAERS Safety Report 7996989-4 (Version None)
Quarter: 2011Q4

REPORT INFORMATION
  Report Type: 
  Country: None (occurrence: None)
  Receive Date: 20111221
  Receipt Date: 20111214
  Transmission Date: 20120403
  Serious: Yes (Other)
  Sender: FDA-Public Use
  Company Number: PHEH2011US011827

PATIENT
  Sex: Male
  Weight: 15 kg

DRUGS (9)
  1. EXJADE [Suspect]
     Indication: IRON OVERLOAD
     Dosage: 625 MG, QD
     Route: 048
     Dates: start: 20101101
  2. EXJADE [Suspect]
     Dosage: 625 MG, QD
     Route: 048
     Dates: start: 20110316, end: 20110927
  3. ZYRTEC [Concomitant]
     Dosage: 1 MG/ML, UNK
     Dates: start: 20100224
  4. AMOXICILLIN [Concomitant]
     Dosage: 250 MG, PER 5 ML
  5. ACETAMINOPHEN W/ CODEINE [Concomitant]
     Dosage: 120 ML, BID
     Dates: start: 20080708
  6. IBUPROFEN [Concomitant]
     Dosage: 120 ML, TID
     Dates: start: 20110114
  7. ADVAIR DISKUS 100/50 [Concomitant]
     Dates: start: 20110503
  8. FOLIC ACID [Concomitant]
     Route: 048
     Dates: start: 20080311
  9. RED BLOOD CELLS [Concomitant]

REACTIONS (12)
  - CHROMATURIA [None]
  - REFLEXES ABNORMAL [None]
  - HAEMOCHROMATOSIS [None]
  - HYPOTENSION [None]
  - ENURESIS [None]
  - JAUNDICE [None]
  - AFFECTIVE DISORDER [None]
  - ASPARTATE AMINOTRANSFERASE INCREASED [None]
  - ALANINE AMINOTRANSFERASE INCREASED [None]
  - SKIN HYPERPIGMENTATION [None]
  - VITAMIN D DEFICIENCY [None]
  - ASTHMA [None]
